FAERS Safety Report 7295076-0 (Version None)
Quarter: 2011Q1

REPORT INFORMATION
  Report Type: 
  Country: None (occurrence: None)
  Receive Date: 20110216
  Receipt Date: 20110208
  Transmission Date: 20110831
  Serious: Yes (Hospitalization)
  Sender: FDA-Public Use
  Company Number: HU-JNJFOC-20110203603

PATIENT
  Age: 68 Year
  Sex: Female
  Weight: 74 kg

DRUGS (13)
  1. HUMULIN R [Concomitant]
     Dosage: 18 UNITS IN THE AM
     Route: 058
  2. REMICADE [Suspect]
     Route: 042
  3. HUMULIN N [Concomitant]
     Dosage: 10 UNITS IN THE PM
     Route: 058
  4. HUMULIN N [Concomitant]
     Indication: DIABETES MELLITUS
     Dosage: 14 UNITS IN THE AM
     Route: 058
  5. REMICADE [Suspect]
     Indication: PSORIASIS
     Route: 042
  6. HUMULIN R [Concomitant]
     Indication: DIABETES MELLITUS
     Dosage: 4 UNITS IN THE PM
     Route: 058
  7. METHOTREXATE [Concomitant]
     Indication: PSORIASIS
     Route: 048
  8. FRONTIN [Concomitant]
     Indication: ANXIETY
     Route: 048
  9. FRONTIN [Concomitant]
     Route: 048
  10. HUMULIN R [Concomitant]
     Dosage: 10 UNITS AT LUNCH
     Route: 058
  11. NITROMINT [Concomitant]
     Indication: MYOCARDIAL ISCHAEMIA
     Route: 048
  12. DIAPHYLLIN [Concomitant]
     Indication: BRONCHITIS CHRONIC
     Route: 048
  13. FOLIC ACID [Concomitant]
     Route: 048

REACTIONS (1)
  - SCIATICA [None]
